FAERS Safety Report 4986567-3 (Version None)
Quarter: 2006Q2

REPORT INFORMATION
  Report Type: 
  Country: None (occurrence: None)
  Receive Date: 20060428
  Receipt Date: 20051026
  Transmission Date: 20061013
  Serious: No
  Sender: FDA-Public Use
  Company Number: US-GLAXOSMITHKLINE-A0579785A

PATIENT
  Age: 65 Year
  Sex: Female

DRUGS (12)
  1. VENTOLIN [Suspect]
     Indication: ASTHMA
     Route: 055
  2. ALBUTEROL [Suspect]
     Indication: ASTHMA
  3. FLOVENT [Concomitant]
  4. SPIRIVA [Concomitant]
  5. NASONEX [Concomitant]
  6. PREDNISONE [Concomitant]
  7. THEO-DUR [Concomitant]
  8. ALAVERT [Concomitant]
  9. SINGULAIR [Concomitant]
  10. LEXAPRO [Concomitant]
  11. XANAX [Concomitant]
  12. BRETHINE [Concomitant]

REACTIONS (6)
  - DRUG ADMINISTRATION ERROR [None]
  - DRUG INEFFECTIVE [None]
  - DRY SKIN [None]
  - DYSPHAGIA [None]
  - GENERAL PHYSICAL HEALTH DETERIORATION [None]
  - PHARYNGEAL OEDEMA [None]
